FAERS Safety Report 8852188 (Version 2)
Quarter: 2012Q4

REPORT INFORMATION
  Report Type: 
  Country: IE (occurrence: IE)
  Receive Date: 20121022
  Receipt Date: 20121106
  Transmission Date: 20130627
  Serious: Yes (Hospitalization, Other)
  Sender: FDA-Public Use
  Company Number: IE-AMGEN-IRLSP2012062817

PATIENT
  Age: 55 Year
  Sex: Male
  Weight: 85.2 kg

DRUGS (7)
  1. VECTIBIX [Suspect]
     Indication: COLORECTAL CANCER METASTATIC
     Dosage: 500 mg, q2wk
     Route: 042
     Dates: start: 20120427, end: 20120919
  2. ONDANSETRON [Concomitant]
     Dosage: 8 mg, qd
     Route: 048
     Dates: start: 20120919, end: 20120921
  3. ONDANSETRON [Concomitant]
     Route: 042
  4. DEXAMETHASONE [Concomitant]
     Dosage: 8 mg, qd
     Route: 042
     Dates: start: 20120919, end: 20120919
  5. CALCIUM GLUCONATE [Concomitant]
     Dosage: 804 mg, qd
     Route: 042
     Dates: start: 20120919, end: 20120919
  6. 5-FLUOROURACIL /00098801/ [Concomitant]
     Dosage: 804 mg, qd
     Route: 042
     Dates: start: 20120919, end: 20120919
  7. 5-FLUOROURACIL /00098801/ [Concomitant]
     Dosage: 482 mg, per chemo regim
     Dates: start: 20120919, end: 20120921

REACTIONS (7)
  - Skin reaction [Recovered/Resolved]
  - Rash [Recovered/Resolved]
  - Blister [Unknown]
  - Pain of skin [Unknown]
  - Mucosal inflammation [Unknown]
  - Pruritus [Unknown]
  - Erythema [Unknown]
